FAERS Safety Report 10045843 (Version 2)
Quarter: 2014Q1

REPORT INFORMATION
  Report Type: Report from Study
  Country: NL (occurrence: NL)
  Receive Date: 20140329
  Receipt Date: 20140329
  Transmission Date: 20141002
  Serious: Yes (Death)
  Sender: FDA-Public Use
  Company Number: NL-ABBVIE-14P-114-1187759-00

PATIENT
  Age: 78 Year
  Sex: Male
  Weight: 74 kg

DRUGS (3)
  1. LUCRIN [Suspect]
     Indication: PROSTATE CANCER
     Route: 058
     Dates: start: 20131009
  2. ABILIFY [Concomitant]
     Indication: ANXIETY
     Route: 048
     Dates: start: 2011
  3. ABILIFY [Concomitant]
     Indication: PRURITUS

REACTIONS (2)
  - Death [Fatal]
  - Pruritus [Recovering/Resolving]
